FAERS Safety Report 25398764 (Version 1)
Quarter: 2025Q2

REPORT INFORMATION
  Report Type: Spontaneous
  Country: JP (occurrence: JP)
  Receive Date: 20250604
  Receipt Date: 20250604
  Transmission Date: 20250717
  Serious: Yes (Death, Other)
  Sender: RECORDATI
  Company Number: JP-ORPHANEU-2025003819

PATIENT
  Age: 3 Decade
  Sex: Female

DRUGS (2)
  1. OSILODROSTAT [Suspect]
     Active Substance: OSILODROSTAT
     Indication: Cushing^s syndrome
  2. MITOTANE [Suspect]
     Active Substance: MITOTANE
     Indication: Adrenocortical carcinoma

REACTIONS (4)
  - Tumour rupture [Fatal]
  - Tumour lysis syndrome [Fatal]
  - Shock haemorrhagic [Fatal]
  - Seizure [Unknown]
